FAERS Safety Report 14605166 (Version 2)
Quarter: 2018Q1

REPORT INFORMATION
  Report Type: Spontaneous
  Country: JP (occurrence: JP)
  Receive Date: 20180306
  Receipt Date: 20180315
  Transmission Date: 20180509
  Serious: Yes (Death, Life-Threatening, Hospitalization)
  Sender: FDA-Public Use
  Company Number: JP-CELGENEUS-JPN-20180301396

PATIENT
  Age: 77 Year
  Sex: Male
  Weight: 56 kg

DRUGS (6)
  1. ABRAXANE [Suspect]
     Active Substance: PACLITAXEL
     Indication: PANCREATIC CARCINOMA METASTATIC
     Dosage: 170 MILLIGRAM
     Route: 041
     Dates: start: 20180131
  2. MAGNESIUM OXIDE. [Concomitant]
     Active Substance: MAGNESIUM OXIDE
     Indication: PRODUCT USED FOR UNKNOWN INDICATION
     Dosage: 990 MILLIGRAM
     Route: 048
  3. GEMCITABINE HYDROCHLORIDE. [Concomitant]
     Active Substance: GEMCITABINE HYDROCHLORIDE
     Indication: PANCREATIC CARCINOMA METASTATIC
     Route: 065
     Dates: start: 20150416, end: 20180117
  4. LANSOPRAZOLE. [Concomitant]
     Active Substance: LANSOPRAZOLE
     Indication: PRODUCT USED FOR UNKNOWN INDICATION
     Dosage: 30 MILLIGRAM
     Route: 048
  5. GEMCITABINE HYDROCHLORIDE. [Concomitant]
     Active Substance: GEMCITABINE HYDROCHLORIDE
     Dosage: 200 MILLIGRAM
     Route: 041
     Dates: start: 20180131
  6. DOMPERIDONE [Concomitant]
     Active Substance: DOMPERIDONE
     Indication: PRODUCT USED FOR UNKNOWN INDICATION
     Dosage: 30 MILLIGRAM
     Route: 048

REACTIONS (4)
  - Interstitial lung disease [Fatal]
  - Pulmonary alveolar haemorrhage [Fatal]
  - Febrile neutropenia [Unknown]
  - Septic shock [Unknown]

NARRATIVE: CASE EVENT DATE: 20180211
